FAERS Safety Report 8972808 (Version 2)
Quarter: 2013Q1

REPORT INFORMATION
  Report Type: Spontaneous
  Country: SE (occurrence: SE)
  Receive Date: 20121218
  Receipt Date: 20130117
  Transmission Date: 20140127
  Serious: Yes (Hospitalization)
  Sender: FDA-Public Use
  Company Number: SE-ROCHE-1168739

PATIENT
  Age: 70 Year
  Sex: Female

DRUGS (7)
  1. MABTHERA [Suspect]
     Indication: WALDENSTROM^S MACROGLOBULINAEMIA
     Route: 042
     Dates: start: 20120320, end: 20120329
  2. ALVEDON [Concomitant]
     Route: 065
  3. CIPRALEX [Concomitant]
     Route: 065
  4. PROPAVAN [Concomitant]
     Route: 065
  5. XANOR [Concomitant]
     Route: 065
  6. STILNOCT [Concomitant]
     Route: 065
  7. METADON [Concomitant]

REACTIONS (3)
  - Muscle disorder [Not Recovered/Not Resolved]
  - Dyspnoea [Recovered/Resolved]
  - Pyrexia [Unknown]
